FAERS Safety Report 8783399 (Version 1)
Quarter: 2012Q4

REPORT INFORMATION
  Report Type: 
  Country: US (occurrence: US)
  Receive Date: 20120913
  Receipt Date: 20120913
  Transmission Date: 20130627
  Serious: No
  Sender: FDA-Public Use
  Company Number: US-VERTEX PHARMACEUTICAL INC.-AE-2012-008995

PATIENT
  Age: 45 Year
  Sex: Female
  Weight: 76.82 kg

DRUGS (6)
  1. INCIVEK [Suspect]
     Indication: HEPATITIS C
     Route: 048
     Dates: start: 20120316, end: 20120611
  2. RIBAVIRIN [Concomitant]
     Indication: HEPATITIS C
     Route: 048
     Dates: start: 20120316
  3. PEGASYS [Concomitant]
     Indication: HEPATITIS C
     Route: 058
     Dates: start: 20120316
  4. WARFARIN [Concomitant]
     Indication: ANTICOAGULANT THERAPY
  5. BP MEDS [Concomitant]
     Indication: BLOOD PRESSURE
  6. SLEEP MEDS [Concomitant]

REACTIONS (1)
  - Rash pruritic [Unknown]
